FAERS Safety Report 4650084-0 (Version None)
Quarter: 2005Q2

REPORT INFORMATION
  Report Type: 
  Country: None (occurrence: None)
  Receive Date: 20050428
  Receipt Date: 20050419
  Transmission Date: 20051028
  Serious: Yes (Other)
  Sender: FDA-Public Use
  Company Number: HQWYE129419APR05

PATIENT
  Age: 64 Year
  Sex: Female

DRUGS (5)
  1. AMIODARONE HCL [Suspect]
     Dosage: 150 MG 1X PER 1 DAY INTRAVENOUS
     Route: 042
     Dates: start: 19980104, end: 19980104
  2. FLECAINIDE ACETATE [Concomitant]
  3. MESALAMINE [Concomitant]
  4. HEPARIN [Concomitant]
  5. THYROXIN (LEVOTHYROXINE SODIUM) [Concomitant]

REACTIONS (1)
  - BACK PAIN [None]
